FAERS Safety Report 12455140 (Version 1)
Quarter: 2016Q2

REPORT INFORMATION
  Report Type: Report from Study
  Country: BR (occurrence: BR)
  Receive Date: 20160610
  Receipt Date: 20160610
  Transmission Date: 20160815
  Serious: Yes (Hospitalization, Other)
  Sender: FDA-Public Use
  Company Number: PHHY2016BR063580

PATIENT
  Age: 43 Year
  Sex: Female
  Weight: 53 kg

DRUGS (1)
  1. EXJADE [Suspect]
     Active Substance: DEFERASIROX
     Indication: SICKLE CELL ANAEMIA
     Dosage: 500 MG (10 MG/KG), QD
     Route: 048

REACTIONS (13)
  - Sickle cell anaemia with crisis [Recovering/Resolving]
  - Pain in extremity [Recovering/Resolving]
  - Headache [Recovering/Resolving]
  - Hypersplenism [Unknown]
  - Confusional state [Unknown]
  - Pain [Recovering/Resolving]
  - Pallor [Unknown]
  - Pyrexia [Unknown]
  - Hepatomegaly [Unknown]
  - Arrhythmia [Unknown]
  - Swelling [Unknown]
  - Haemoglobin decreased [Recovering/Resolving]
  - Syncope [Unknown]

NARRATIVE: CASE EVENT DATE: 20160415
